FAERS Safety Report 16158751 (Version 2)
Quarter: 2019Q2

REPORT INFORMATION
  Report Type: Report from Study
  Country: US (occurrence: US)
  Receive Date: 20190404
  Receipt Date: 20190505
  Transmission Date: 20190711
  Serious: No
  Sender: FDA-Public Use
  Company Number: PHEH2019US014153

PATIENT
  Age: 57 Year
  Sex: Female

DRUGS (1)
  1. COSENTYX [Suspect]
     Active Substance: SECUKINUMAB
     Indication: PSORIATIC ARTHROPATHY
     Route: 065

REACTIONS (5)
  - Bursitis [Recovering/Resolving]
  - Pain in extremity [Unknown]
  - Product prescribing error [Unknown]
  - Enthesopathy [Recovering/Resolving]
  - Musculoskeletal stiffness [Unknown]
